FAERS Safety Report 10963428 (Version 1)
Quarter: 2015Q1

REPORT INFORMATION
  Report Type: Spontaneous
  Country: US (occurrence: None)
  Receive Date: 20150327
  Receipt Date: 20150327
  Transmission Date: 20150721
  Serious: No
  Sender: FDA-Public Use
  Company Number: None

PATIENT
  Sex: Female
  Weight: 72 kg

DRUGS (5)
  1. VITAMIN D [Concomitant]
     Active Substance: CHOLECALCIFEROL
  2. AROMASIN [Suspect]
     Active Substance: EXEMESTANE
     Dosage: 25 MG DAILY IN THE MORNING
     Dates: start: 20150221
  3. FOLIC ACID. [Concomitant]
     Active Substance: FOLIC ACID
  4. SERTRALINE [Concomitant]
     Active Substance: SERTRALINE HYDROCHLORIDE
  5. GENERIC ALLEGRA [Concomitant]

REACTIONS (2)
  - Reaction to drug excipients [None]
  - Feeling cold [None]
